FAERS Safety Report 10969205 (Version 1)
Quarter: 2015Q1

REPORT INFORMATION
  Report Type: Spontaneous
  Country: AU (occurrence: None)
  Receive Date: 20150327
  Receipt Date: 20150327
  Transmission Date: 20150721
  Serious: Yes (Hospitalization)
  Sender: FDA-Public Use
  Company Number: 2015AU011099

PATIENT
  Age: 46 Year
  Sex: Female
  Weight: 52.3 kg

DRUGS (4)
  1. ALOXI [Suspect]
     Active Substance: PALONOSETRON HYDROCHLORIDE
     Route: 042
  2. DEXAMETHASONE (DEXAMETHASONE) [Suspect]
     Active Substance: DEXAMETHASONE
     Route: 048
  3. EMEND [Suspect]
     Active Substance: APREPITANT
     Route: 048
  4. EPIRUBICIN [Suspect]
     Active Substance: EPIRUBICIN
     Route: 040

REACTIONS (6)
  - Rash [None]
  - Throat tightness [None]
  - Palpitations [None]
  - Cough [None]
  - Presyncope [None]
  - Feeling hot [None]
